FAERS Safety Report 16320610 (Version 1)
Quarter: 2019Q2

REPORT INFORMATION
  Report Type: Spontaneous
  Country: IT (occurrence: IT)
  Receive Date: 20190516
  Receipt Date: 20190516
  Transmission Date: 20190711
  Serious: Yes (Other)
  Sender: FDA-Public Use
  Company Number: IT-PFIZER INC-2019204715

PATIENT
  Age: 80 Year
  Sex: Female

DRUGS (1)
  1. TAVOR (LORAZEPAM) [Suspect]
     Active Substance: LORAZEPAM
     Dosage: 40 MG, (TOTAL)
     Route: 048
     Dates: start: 20180819, end: 20180819

REACTIONS (4)
  - Hypokinesia [Recovering/Resolving]
  - Somnolence [Recovering/Resolving]
  - Drug abuse [Recovering/Resolving]
  - Bradyphrenia [Recovering/Resolving]

NARRATIVE: CASE EVENT DATE: 20180819
